FAERS Safety Report 16701300 (Version 1)
Quarter: 2019Q3

REPORT INFORMATION
  Report Type: Spontaneous
  Country: US (occurrence: US)
  Receive Date: 20190814
  Receipt Date: 20190814
  Transmission Date: 20191004
  Serious: No
  Sender: FDA-Public Use
  Company Number: US-ZYDUS-037159

PATIENT
  Age: 59 Year
  Sex: Male

DRUGS (2)
  1. METHYLPREDNISOLONE. [Suspect]
     Active Substance: METHYLPREDNISOLONE
     Indication: UPPER RESPIRATORY TRACT INFECTION
     Dosage: AS DIRECTED
     Route: 048
     Dates: start: 20190515
  2. PANTOPRAZOLE [Concomitant]
     Active Substance: PANTOPRAZOLE
     Indication: DYSPEPSIA
     Route: 065

REACTIONS (1)
  - Product administration error [Recovered/Resolved]

NARRATIVE: CASE EVENT DATE: 20190516
